FAERS Safety Report 18553623 (Version 1)
Quarter: 2020Q4

REPORT INFORMATION
  Report Type: Spontaneous
  Country: US (occurrence: US)
  Receive Date: 20201127
  Receipt Date: 20201127
  Transmission Date: 20210114
  Serious: No
  Sender: FDA-Public Use
  Company Number: US-GLAXOSMITHKLINE-US2020228438

PATIENT
  Age: 54 Year
  Sex: Female

DRUGS (1)
  1. NICORETTE [Suspect]
     Active Substance: NICOTINE
     Indication: SMOKING CESSATION THERAPY
     Dosage: UNK UNK, QD (ONE A DAY, FOR 2 OR 3 DAYS)
     Dates: start: 20201103, end: 20201116

REACTIONS (1)
  - Dyspepsia [Recovered/Resolved]
